FAERS Safety Report 5893925-1 (Version None)
Quarter: 2008Q3

REPORT INFORMATION
  Report Type: 
  Country: None (occurrence: None)
  Receive Date: 20080923
  Receipt Date: 20080911
  Transmission Date: 20090109
  Serious: Yes (Hospitalization)
  Sender: FDA-Public Use
  Company Number: US-ELI_LILLY_AND_COMPANY-US200809002950

PATIENT
  Sex: Female

DRUGS (2)
  1. HUMALOG [Suspect]
     Dosage: UNK, UNK
     Dates: start: 19680101
  2. HUMALOG [Suspect]
     Dates: start: 20080908

REACTIONS (4)
  - ARTHRITIS [None]
  - BLOOD GLUCOSE DECREASED [None]
  - HYPOGLYCAEMIA UNAWARENESS [None]
  - LOWER LIMB FRACTURE [None]
